FAERS Safety Report 16713336 (Version 3)
Quarter: 2020Q3

REPORT INFORMATION
  Report Type: Spontaneous
  Country: DE (occurrence: DE)
  Receive Date: 20190818
  Receipt Date: 20200917
  Transmission Date: 20201102
  Serious: Yes (Hospitalization, Congenital Anomaly, Other)
  Sender: FDA-Public Use
  Company Number: DE-TEVA-2019-DE-1091169

PATIENT
  Age: 0 Year
  Sex: Male

DRUGS (1)
  1. COPAXONE [Suspect]
     Active Substance: GLATIRAMER ACETATE
     Indication: RELAPSING-REMITTING MULTIPLE SCLEROSIS
     Route: 064
     Dates: start: 201806

REACTIONS (9)
  - Polydactyly [Not Recovered/Not Resolved]
  - Foetal exposure during pregnancy [Unknown]
  - Exposure via breast milk [Unknown]
  - Deafness congenital [Not Recovered/Not Resolved]
  - Gnathoschisis [Not Recovered/Not Resolved]
  - Cleft lip and palate [Not Recovered/Not Resolved]
  - Congenital anomaly of inner ear [Not Recovered/Not Resolved]
  - Adactyly [Not Recovered/Not Resolved]
  - Amniotic band syndrome [Unknown]

NARRATIVE: CASE EVENT DATE: 20180930
